FAERS Safety Report 14502997 (Version 1)
Quarter: 2018Q1

REPORT INFORMATION
  Report Type: Spontaneous
  Country: US (occurrence: US)
  Receive Date: 20180208
  Receipt Date: 20180208
  Transmission Date: 20180509
  Serious: No
  Sender: FDA-Public Use
  Company Number: US-US WORLDMEDS, LLC-USW201612-000925

PATIENT

DRUGS (1)
  1. CORGARD [Suspect]
     Active Substance: NADOLOL

REACTIONS (1)
  - Adverse event [Unknown]
